FAERS Safety Report 16829643 (Version 1)
Quarter: 2019Q3

REPORT INFORMATION
  Report Type: Spontaneous
  Country: JP (occurrence: JP)
  Receive Date: 20190919
  Receipt Date: 20190919
  Transmission Date: 20191005
  Serious: Yes (Hospitalization, Other)
  Sender: FDA-Public Use
  Company Number: JP-SHIRE-JP201929164AA

PATIENT
  Age: 41 Year
  Sex: Male

DRUGS (2)
  1. AGRYLIN [Suspect]
     Active Substance: ANAGRELIDE HYDROCHLORIDE
     Indication: ESSENTIAL THROMBOCYTHAEMIA
     Dosage: UNK
     Route: 065
  2. ASPIRIN (E.C.) [Suspect]
     Active Substance: ASPIRIN
     Indication: ESSENTIAL THROMBOCYTHAEMIA
     Dosage: UNK
     Route: 048

REACTIONS (5)
  - Platelet aggregation inhibition [Unknown]
  - Mucosal disorder [Unknown]
  - Aneurysm ruptured [Recovered/Resolved]
  - Gastric ulcer haemorrhage [Unknown]
  - Artery dissection [Unknown]

NARRATIVE: CASE EVENT DATE: 201506
